FAERS Safety Report 12486775 (Version 2)
Quarter: 2016Q2

REPORT INFORMATION
  Report Type: Report from Study
  Country: DE (occurrence: DE)
  Receive Date: 20160621
  Receipt Date: 20160629
  Transmission Date: 20160815
  Serious: Yes (Hospitalization, Other)
  Sender: FDA-Public Use
  Company Number: DE-GILEAD-2016-0218797

PATIENT
  Age: 53 Year
  Sex: Male
  Weight: 80 kg

DRUGS (8)
  1. PANTOPRAZOL [Concomitant]
     Active Substance: PANTOPRAZOLE SODIUM
     Dosage: 20 MG, UNK
  2. NOVALGIN [Concomitant]
     Active Substance: METAMIZOLE SODIUM
     Dosage: 40 UNK, UNK
  3. FLUOXETIN [Concomitant]
     Active Substance: FLUOXETINE HYDROCHLORIDE
     Dosage: 20 MG, UNK
  4. HCT BETA [Concomitant]
     Active Substance: HYDROCHLOROTHIAZIDE
     Dosage: 12.5 MG, UNK
  5. LYRICA [Concomitant]
     Active Substance: PREGABALIN
     Dosage: 250 MG, UNK
  6. LISINOPRIL. [Concomitant]
     Active Substance: LISINOPRIL
  7. FENTANYL. [Concomitant]
     Active Substance: FENTANYL
     Dosage: 37.5 MG, UNK
  8. LEDIPASVIR/SOFOSBUVIR [Suspect]
     Active Substance: LEDIPASVIR\SOFOSBUVIR
     Indication: CHRONIC HEPATITIS C
     Dosage: 90 MG, QD
     Route: 048
     Dates: start: 20150324, end: 20150616

REACTIONS (3)
  - Cerebrovascular accident [Recovering/Resolving]
  - Venous thrombosis [Unknown]
  - Hypertension [Unknown]

NARRATIVE: CASE EVENT DATE: 20150717
